FAERS Safety Report 8916459 (Version 1)
Quarter: 2012Q4

REPORT INFORMATION
  Report Type: 
  Country: US (occurrence: US)
  Receive Date: 20121120
  Receipt Date: 20121120
  Transmission Date: 20130627
  Serious: No
  Sender: FDA-Public Use
  Company Number: US-PFIZER INC-2012285400

PATIENT
  Sex: Male

DRUGS (1)
  1. XYNTHA [Suspect]
     Dosage: UNK
     Route: 042

REACTIONS (1)
  - Headache [Unknown]
